FAERS Safety Report 15406190 (Version 1)
Quarter: 2018Q3

REPORT INFORMATION
  Report Type: Spontaneous
  Country: JP (occurrence: JP)
  Receive Date: 20180920
  Receipt Date: 20180920
  Transmission Date: 20181010
  Serious: Yes (Death, Other)
  Sender: FDA-Public Use
  Company Number: JP-SUN PHARMACEUTICAL INDUSTRIES LTD-2018RR-184910

PATIENT
  Age: 71 Year
  Sex: Female

DRUGS (6)
  1. GEFITINIB. [Suspect]
     Active Substance: GEFITINIB
     Indication: ADENOCARCINOMA
     Dosage: UNK
     Route: 065
  2. PACLITAXEL. [Suspect]
     Active Substance: PACLITAXEL
     Indication: ADENOCARCINOMA
     Dosage: 4 CYCLES
     Route: 065
  3. ERLOTINIB [Suspect]
     Active Substance: ERLOTINIB
     Indication: ADENOCARCINOMA
     Dosage: 150 MG, DAILY
     Route: 051
  4. DEXAMETHASONE. [Concomitant]
     Active Substance: DEXAMETHASONE
     Indication: ADENOCARCINOMA
     Dosage: 8 MG, DAILY
     Route: 041
  5. GLYCERIN. [Concomitant]
     Active Substance: GLYCERIN
     Indication: ADENOCARCINOMA
     Dosage: UNK
     Route: 041
  6. CARBOPLATIN. [Suspect]
     Active Substance: CARBOPLATIN
     Indication: ADENOCARCINOMA
     Dosage: 4 CYCLES
     Route: 065

REACTIONS (4)
  - Drug effect incomplete [Unknown]
  - Pneumatosis intestinalis [Recovering/Resolving]
  - Diarrhoea [Recovered/Resolved]
  - Disease progression [Fatal]
